FAERS Safety Report 17981371 (Version 1)
Quarter: 2020Q3

REPORT INFORMATION
  Report Type: Spontaneous
  Country: BE (occurrence: BE)
  Receive Date: 20200705
  Receipt Date: 20200705
  Transmission Date: 20201103
  Serious: Yes (Hospitalization, Other)
  Sender: FDA-Public Use
  Company Number: BE-BEH-2020119417

PATIENT
  Age: 26 Year
  Sex: Female
  Weight: 63.9 kg

DRUGS (12)
  1. PANTOMED [PANTOPRAZOLE SODIUM SESQUIHYDRATE] [Concomitant]
     Active Substance: PANTOPRAZOLE SODIUM
     Dosage: UNK
     Route: 065
  2. PRIVIGEN [Suspect]
     Active Substance: HUMAN IMMUNOGLOBULIN G
     Indication: HYPOGAMMAGLOBULINAEMIA
  3. XARELTO [Concomitant]
     Active Substance: RIVAROXABAN
     Indication: SUPERIOR VENA CAVA SYNDROME
     Dosage: UNK
     Route: 065
     Dates: start: 20200412
  4. EUSAPRIM [SULFAMETHOXAZOLE;TRIMETHOPRIM] [Concomitant]
     Active Substance: SULFAMETHOXAZOLE\TRIMETHOPRIM
     Indication: PROPHYLAXIS
     Dosage: UNK
     Route: 065
     Dates: start: 20200426
  5. NEUPOGEN [Concomitant]
     Active Substance: FILGRASTIM
  6. FRAXODI [Concomitant]
     Active Substance: NADROPARIN CALCIUM
     Indication: SUPERIOR VENA CAVA SYNDROME
     Dosage: UNK
     Route: 065
     Dates: start: 20191003
  7. DAFALGAN [Concomitant]
     Active Substance: ACETAMINOPHEN
     Dosage: UNK
     Route: 065
  8. PRIVIGEN [Suspect]
     Active Substance: HUMAN IMMUNOGLOBULIN G
     Indication: LYMPHOCYTE COUNT DECREASED
     Dosage: 22.5 MILLIGRAM  (0.4 MG/KG), TOT
     Route: 042
     Dates: start: 20200428, end: 20200428
  9. PLAQUENIL [HYDROXYCHLOROQUINE PHOSPHATE] [Suspect]
     Active Substance: HYDROXYCHLOROQUINE DIPHOSPHATE
     Indication: COVID-19
     Dosage: 400 MG
     Route: 065
     Dates: start: 20200426, end: 20200427
  10. CERAZETTE [DESOGESTREL] [Concomitant]
     Active Substance: DESOGESTREL
     Dosage: UNK
     Route: 065
  11. ZOVIRAX [Concomitant]
     Active Substance: ACYCLOVIR
     Dosage: UNK
     Route: 065
  12. FOLAVIT [Concomitant]
     Active Substance: FOLIC ACID
     Dosage: UNK
     Route: 065
     Dates: start: 20190911

REACTIONS (3)
  - No adverse event [Unknown]
  - Product use in unapproved indication [Unknown]
  - Drug hypersensitivity [Recovered/Resolved]

NARRATIVE: CASE EVENT DATE: 20200429
